FAERS Safety Report 13525437 (Version 1)
Quarter: 2017Q2

REPORT INFORMATION
  Report Type: Spontaneous
  Country: US (occurrence: US)
  Receive Date: 20170508
  Receipt Date: 20170508
  Transmission Date: 20170830
  Serious: No
  Sender: FDA-Public Use
  Company Number: US-ROCHE-1081918

PATIENT
  Age: 31 Year
  Sex: Male

DRUGS (1)
  1. AVASTIN [Suspect]
     Active Substance: BEVACIZUMAB
     Indication: ADRENOCORTICAL CARCINOMA
     Route: 065
     Dates: start: 201009, end: 201106

REACTIONS (2)
  - Fistula [Unknown]
  - Perirectal abscess [Unknown]

NARRATIVE: CASE EVENT DATE: 201105
